FAERS Safety Report 9614655 (Version 6)
Quarter: 2014Q1

REPORT INFORMATION
  Report Type: Spontaneous
  Country: US (occurrence: US)
  Receive Date: 20131011
  Receipt Date: 20140218
  Transmission Date: 20141002
  Serious: Yes (Hospitalization)
  Sender: FDA-Public Use
  Company Number: US-JNJFOC-20131002587

PATIENT
  Age: 81 Year
  Sex: Female
  Weight: 64.86 kg

DRUGS (24)
  1. XARELTO [Suspect]
     Indication: DEEP VEIN THROMBOSIS
     Route: 048
     Dates: start: 20130521, end: 20130826
  2. XARELTO [Suspect]
     Indication: DEEP VEIN THROMBOSIS
     Route: 048
     Dates: start: 20130503
  3. DACOMITINIB [Suspect]
     Indication: NON-SMALL CELL LUNG CANCER
     Route: 048
     Dates: start: 20130603, end: 20130826
  4. DACOMITINIB [Suspect]
     Indication: NON-SMALL CELL LUNG CANCER
     Route: 048
     Dates: start: 20130903
  5. SOTALOL [Concomitant]
     Indication: ARRHYTHMIA
     Route: 065
     Dates: start: 2009
  6. LOPID [Concomitant]
     Indication: BLOOD CHOLESTEROL
     Route: 065
  7. ZOCOR [Concomitant]
     Indication: BLOOD CHOLESTEROL
     Route: 065
     Dates: start: 2009
  8. CLONIDINE [Concomitant]
     Indication: HYPERTENSION
     Route: 065
     Dates: start: 2011
  9. LISINOPRIL [Concomitant]
     Indication: HYPERTENSION
     Route: 065
     Dates: start: 2011
  10. MEGACE [Concomitant]
     Indication: DECREASED APPETITE
     Route: 048
     Dates: start: 20130617
  11. NORVASC [Concomitant]
     Indication: HYPERTENSION
     Route: 065
     Dates: start: 2011
  12. METFORMIN [Concomitant]
     Indication: DIABETES MELLITUS
     Route: 048
     Dates: start: 2010
  13. PRILOSEC [Concomitant]
     Route: 065
  14. ZOLPIDEM [Concomitant]
     Indication: SLEEP DISORDER
     Route: 065
     Dates: start: 2010
  15. FOLIC ACID [Concomitant]
     Indication: SUPPLEMENTATION THERAPY
     Route: 048
     Dates: start: 20130221
  16. MOTRIN [Concomitant]
     Indication: PAIN
     Route: 048
     Dates: start: 20130514
  17. IMODIUM [Concomitant]
     Indication: DIARRHOEA
     Route: 048
     Dates: start: 20130624
  18. VITAMIN D2 [Concomitant]
     Indication: SUPPLEMENTATION THERAPY
     Dosage: 1 TABLET/DAY
     Route: 065
     Dates: start: 2009
  19. ATIVAN [Concomitant]
     Indication: NAUSEA
     Route: 048
     Dates: start: 20130523
  20. ATIVAN [Concomitant]
     Indication: ANXIETY
     Route: 048
     Dates: start: 20130523
  21. FERROUS SULPHATE [Concomitant]
     Indication: SUPPLEMENTATION THERAPY
     Route: 048
     Dates: start: 2012
  22. CALCIUM [Concomitant]
     Indication: SUPPLEMENTATION THERAPY
     Route: 048
     Dates: start: 2011
  23. MAGNESIUM SULFATE [Concomitant]
     Indication: HYPOMAGNESAEMIA
     Route: 065
     Dates: start: 20130812
  24. DEXAMETHASONE [Concomitant]
     Route: 048

REACTIONS (8)
  - Gastrointestinal haemorrhage [Recovering/Resolving]
  - Dyspnoea [Recovering/Resolving]
  - Diarrhoea [Recovered/Resolved]
  - Fatigue [Recovering/Resolving]
  - Muscular weakness [Recovering/Resolving]
  - Anaemia [Recovering/Resolving]
  - Hypoaesthesia [Recovering/Resolving]
  - Incorrect dose administered [Unknown]
